FAERS Safety Report 9094909 (Version 1)
Quarter: 2013Q1

REPORT INFORMATION
  Report Type: Spontaneous
  Country: US (occurrence: None)
  Receive Date: 20130214
  Receipt Date: 20130214
  Transmission Date: 20140127
  Serious: Yes (Death, Life-Threatening, Other)
  Sender: FDA-Public Use
  Company Number: None

PATIENT
  Age: 66 Year
  Sex: Female
  Weight: 65.77 kg

DRUGS (2)
  1. LEXAPRO [Suspect]
     Indication: CRYING
     Dosage: 10MG? ONCE DAILY? PO
     Route: 048
     Dates: start: 20130127, end: 20130130
  2. LEXAPRO [Suspect]
     Indication: DEPRESSION
     Dosage: 10MG? ONCE DAILY? PO
     Route: 048
     Dates: start: 20130127, end: 20130130

REACTIONS (5)
  - Chest pain [None]
  - Agitation [None]
  - Disorientation [None]
  - Confusional state [None]
  - Unresponsive to stimuli [None]
